FAERS Safety Report 5453697-1 (Version None)
Quarter: 2007Q3

REPORT INFORMATION
  Report Type: 
  Country: None (occurrence: None)
  Receive Date: 20070917
  Receipt Date: 20070907
  Transmission Date: 20080115
  Serious: Yes (Other)
  Sender: FDA-Public Use
  Company Number: DE-AMGEN-UK242930

PATIENT
  Sex: Female

DRUGS (5)
  1. NEULASTA [Suspect]
     Indication: CHEMOTHERAPY
     Route: 065
  2. RITUXIMAB [Concomitant]
     Route: 065
  3. BENDAMUSTINE [Concomitant]
     Route: 065
  4. CO-TRIMOXAZOLE [Concomitant]
     Route: 065
  5. LEVOFLOXACIN [Concomitant]
     Route: 065

REACTIONS (1)
  - REACTIVE PERFORATING COLLAGENOSIS [None]
